FAERS Safety Report 6688192-5 (Version None)
Quarter: 2010Q2

REPORT INFORMATION
  Report Type: 
  Country: None (occurrence: None)
  Receive Date: 20100420
  Receipt Date: 20100409
  Transmission Date: 20101027
  Serious: Yes (Other)
  Sender: FDA-Public Use
  Company Number: DE-PFIZER INC-2010045199

PATIENT
  Sex: Male

DRUGS (3)
  1. ECALTA [Suspect]
  2. ASPIRIN [Concomitant]
  3. PLAVIX [Concomitant]

REACTIONS (1)
  - HYPERCOAGULATION [None]
